FAERS Safety Report 26198759 (Version 1)
Quarter: 2025Q4

REPORT INFORMATION
  Report Type: Spontaneous
  Country: EU (occurrence: EU)
  Receive Date: 20251225
  Receipt Date: 20251225
  Transmission Date: 20260118
  Serious: Yes (Hospitalization, Other)
  Sender: ACCORD
  Company Number: None

PATIENT
  Age: 59 Year
  Sex: Male
  Weight: 90 kg

DRUGS (44)
  1. DAPTOMYCIN [Suspect]
     Active Substance: DAPTOMYCIN
     Indication: Endocarditis
     Dosage: RECEIVED 8 DAYS AS INPATIENT THEN RECEIVED 9 DAYS ON OUTPATIENT ANTIBIOTIC THERAPY (OPAT)
     Dates: start: 20251013, end: 20251103
  2. ALBUTEROL [Concomitant]
     Active Substance: ALBUTEROL
     Dates: start: 20251003
  3. SENOKOT [Concomitant]
     Active Substance: SENNOSIDES
     Dosage: STRENGTH: 7.5MG
     Dates: start: 20250929
  4. CITALOPRAM [Concomitant]
     Active Substance: CITALOPRAM
  5. BISOPROLOL [Concomitant]
     Active Substance: BISOPROLOL
     Dates: start: 20251022
  6. ZOLPIDEM [Concomitant]
     Active Substance: ZOLPIDEM TARTRATE
     Dates: start: 20251022
  7. APIXABAN [Concomitant]
     Active Substance: APIXABAN
     Dates: start: 20251022
  8. OLMESARTAN [Concomitant]
     Active Substance: OLMESARTAN
  9. ALLOPURINOL [Concomitant]
     Active Substance: ALLOPURINOL
  10. DUTASTERIDE [Concomitant]
     Active Substance: DUTASTERIDE
  11. PANTOPRAZOLE [Concomitant]
     Active Substance: PANTOPRAZOLE
  12. EZETIMIBE [Concomitant]
     Active Substance: EZETIMIBE
  13. ROSUVASTATIN [Concomitant]
     Active Substance: ROSUVASTATIN
     Dosage: WAS ON HOLD WHILE TAKING OFFENDING MEDICINE
  14. ASPIRIN [Concomitant]
     Active Substance: ASPIRIN
     Dates: start: 20251022
  15. COLCHICINE [Concomitant]
     Active Substance: COLCHICINE
     Dates: start: 20251027
  16. AMIODARONE HYDROCHLORIDE [Concomitant]
     Active Substance: AMIODARONE HYDROCHLORIDE
     Dosage: 200MG BD THEN 200MG OD.
     Dates: start: 20251022
  17. GABAPENTIN [Concomitant]
     Active Substance: GABAPENTIN
     Dates: start: 20251022
  18. PRASTERONE [Concomitant]
     Active Substance: PRASTERONE
  19. CIMELDINE [Concomitant]
  20. CEFTRIAXONE [Concomitant]
     Active Substance: CEFTRIAXONE
     Dates: start: 20250924
  21. VANCOMYCIN [Concomitant]
     Active Substance: VANCOMYCIN
     Dosage: 1.5G OD, 1G BD, THEN 1.5G BD.
  22. AMOXICILLIN [Concomitant]
     Active Substance: AMOXICILLIN
     Dates: start: 20250924
  23. ENOXAPARIN [Concomitant]
     Active Substance: ENOXAPARIN
  24. ACETAMINOPHEN [Concomitant]
     Active Substance: ACETAMINOPHEN
  25. CALCIUM\CHOLECALCIFEROL [Concomitant]
     Active Substance: CALCIUM\CHOLECALCIFEROL
     Dosage: 500MG/400IU.
     Dates: start: 20251003
  26. EXPUTEX [Concomitant]
     Dosage: STRENGTH: 250MG / 5ML
     Dates: start: 20250529
  27. CEFAZOLIN [Concomitant]
     Active Substance: CEFAZOLIN
     Dates: start: 20250927
  28. CHLORHEXIDINE [Concomitant]
     Active Substance: CHLORHEXIDINE
  29. CYCLIZINE [Concomitant]
     Active Substance: CYCLIZINE
     Dosage: PRN.
     Dates: start: 20250929
  30. DICLOFENAC [Concomitant]
     Active Substance: DICLOFENAC
     Dates: start: 20251011
  31. DOBUTAMINE [Concomitant]
     Active Substance: DOBUTAMINE HYDROCHLORIDE
     Dosage: STRENGTH: 12.5MG/ML, STERILE CONCENTRATE.
     Dates: start: 20250927
  32. ESOMEPRAZOLE [Concomitant]
     Active Substance: ESOMEPRAZOLE
     Dates: start: 20250930
  33. IRON [Concomitant]
     Active Substance: IRON
     Dates: start: 20250929
  34. FUROSEMIDE [Concomitant]
     Active Substance: FUROSEMIDE
     Dates: start: 20250930
  35. HEPARIN [Concomitant]
     Active Substance: HEPARIN SODIUM
     Dosage: 10 UNITS.
     Dates: start: 20251012
  36. IBUPROFEN [Concomitant]
     Active Substance: IBUPROFEN
     Dosage: 400MG BD/ TDS PRN.
     Dates: start: 20251017
  37. LACTULOSE [Concomitant]
     Active Substance: LACTULOSE
     Dates: start: 20250928
  38. MAGNESIUM [Concomitant]
     Active Substance: MAGNESIUM
     Dosage: 1 SACHET PRN.
     Dates: start: 20250929
  39. NEFOPAM [Concomitant]
     Active Substance: NEFOPAM
     Dosage: PRN.
     Dates: start: 20251003
  40. ONDANSETRON [Concomitant]
     Active Substance: ONDANSETRON
     Dosage: PRN.
     Dates: start: 20250929
  41. OXYCODONE [Concomitant]
     Active Substance: OXYCODONE
     Dosage: 10MG, 5MG, 2.5MG PRN?.
     Dates: start: 20250929
  42. PIPERACILLIN SODIUM\TAZOBACTAM SODIUM [Concomitant]
     Active Substance: PIPERACILLIN SODIUM\TAZOBACTAM SODIUM
     Dates: start: 20251003
  43. POTASSIUM CHLORIDE [Concomitant]
     Active Substance: POTASSIUM CHLORIDE
     Dosage: 1-3 TABS PRN.
  44. PROPOFOL [Concomitant]
     Active Substance: PROPOFOL
     Dates: start: 20250926

REACTIONS (1)
  - Pneumonitis [Recovering/Resolving]

NARRATIVE: CASE EVENT DATE: 20251027
